FAERS Safety Report 17040332 (Version 1)
Quarter: 2019Q4

REPORT INFORMATION
  Report Type: Spontaneous
  Country: US (occurrence: US)
  Receive Date: 20191117
  Receipt Date: 20191117
  Transmission Date: 20200122
  Serious: No
  Sender: FDA-Public Use
  Company Number: US-TORRENT-00007519

PATIENT
  Sex: Female

DRUGS (4)
  1. PRAVASATATIN SODIUM [Concomitant]
     Indication: BLOOD CHOLESTEROL
     Dosage: SINCE MIDDLE OF 2017, DAILY
  2. LOSARTAN. [Suspect]
     Active Substance: LOSARTAN
     Indication: HYPERTENSION
     Dosage: SPLITTING OF 100 MG AND TAKING HALF OF IT
  3. LISINOPRIL. [Suspect]
     Active Substance: LISINOPRIL
     Indication: HYPERTENSION
     Dosage: UNKNOWN
  4. METANIX [Concomitant]
     Indication: NEUROPATHY PERIPHERAL
     Dosage: 1 CAPSULE, TWO TIMES A DAY

REACTIONS (1)
  - Cough [Not Recovered/Not Resolved]
